FAERS Safety Report 8941444 (Version 1)
Quarter: 2012Q4

REPORT INFORMATION
  Report Type: 
  Country: BR (occurrence: US)
  Receive Date: 20121203
  Receipt Date: 20121203
  Transmission Date: 20130627
  Serious: No
  Sender: FDA-Public Use
  Company Number: BR-ASTRAZENECA-2012SE81577

PATIENT
  Sex: Male
  Weight: 78 kg

DRUGS (2)
  1. CRESTOR [Suspect]
     Indication: BLOOD CHOLESTEROL INCREASED
     Route: 048
     Dates: start: 2010, end: 20121022
  2. CRESTOR [Suspect]
     Indication: BLOOD CHOLESTEROL INCREASED
     Route: 048

REACTIONS (2)
  - Blood cholesterol increased [Unknown]
  - Drug ineffective [Unknown]
